FAERS Safety Report 10909869 (Version 1)
Quarter: 2015Q1

REPORT INFORMATION
  Report Type: Spontaneous
  Country: US (occurrence: US)
  Receive Date: 20150312
  Receipt Date: 20150312
  Transmission Date: 20150721
  Serious: No
  Sender: FDA-Public Use
  Company Number: US-SA-2014SA052055

PATIENT
  Age: 90 Year
  Sex: Female
  Weight: 53 kg

DRUGS (1)
  1. NASACORT ALLERGY 24HR [Suspect]
     Active Substance: TRIAMCINOLONE ACETONIDE
     Indication: SINUS CONGESTION
     Dosage: 2 SPRAYS PER NOSTRIL DOSE:2 UNIT(S)
     Route: 045
     Dates: start: 20140408, end: 20140414

REACTIONS (3)
  - Drug ineffective [Unknown]
  - Dizziness [Unknown]
  - Hypertension [Unknown]
